FAERS Safety Report 21422204 (Version 1)
Quarter: 2022Q4

REPORT INFORMATION
  Report Type: Report from Study
  Country: US (occurrence: US)
  Receive Date: 20221007
  Receipt Date: 20221007
  Transmission Date: 20230113
  Serious: No
  Sender: FDA-Public Use
  Company Number: US-NOVARTISTESTPH-NVSC2022US225583

PATIENT
  Sex: Female

DRUGS (1)
  1. COSENTYX [Suspect]
     Active Substance: SECUKINUMAB
     Indication: Psoriasis
     Dosage: UNK
     Route: 065
     Dates: end: 20220810

REACTIONS (6)
  - Fungal infection [Unknown]
  - Rash [Unknown]
  - Skin exfoliation [Unknown]
  - Furuncle [Unknown]
  - Arthralgia [Unknown]
  - Hidradenitis [Unknown]
